FAERS Safety Report 14771368 (Version 1)
Quarter: 2018Q2

REPORT INFORMATION
  Report Type: Spontaneous
  Country: None (occurrence: US)
  Receive Date: 20180417
  Receipt Date: 20180417
  Transmission Date: 20180711
  Serious: No
  Sender: FDA-Public Use
  Company Number: US-ALLERGAN-1733949US

PATIENT
  Sex: Female

DRUGS (2)
  1. LUMIGAN [Suspect]
     Active Substance: BIMATOPROST
     Indication: INTRAOCULAR PRESSURE INCREASED
     Route: 047
  2. LUMIGAN [Suspect]
     Active Substance: BIMATOPROST
     Indication: GLAUCOMA

REACTIONS (3)
  - Blood pressure decreased [Unknown]
  - Ocular hyperaemia [Unknown]
  - Drug ineffective [Unknown]
